FAERS Safety Report 7844057-4 (Version None)
Quarter: 2011Q4

REPORT INFORMATION
  Report Type: 
  Country: None (occurrence: None)
  Receive Date: 20111025
  Receipt Date: 20111012
  Transmission Date: 20120403
  Serious: Yes (Hospitalization, Disabling)
  Sender: FDA-Public Use
  Company Number: GB-ELI_LILLY_AND_COMPANY-GB201108005896

PATIENT
  Age: 71 Year
  Sex: Male
  Weight: 81.9 kg

DRUGS (12)
  1. CARBOPLATIN [Concomitant]
     Indication: MESOTHELIOMA
     Dosage: UNK, UNKNOWN
     Route: 065
  2. ONDANSETRON [Concomitant]
  3. OMEPRAZOLE [Concomitant]
     Dosage: UNK
  4. ALIMTA [Suspect]
     Indication: MESOTHELIOMA
     Dosage: 957 MG, EVERY 21 DAYS
     Route: 042
     Dates: start: 20110328
  5. CORTICOSTEROID NOS [Concomitant]
     Dosage: 4 MG, BID WITH EACH CYCLE
     Dates: start: 20110327
  6. ALIMTA [Suspect]
     Dosage: 675 MG, UNK
     Dates: start: 20110627, end: 20110627
  7. BENDROFLUMETHIAZIDE [Concomitant]
  8. FOLIC ACID [Concomitant]
     Dosage: UNK
     Dates: start: 20110321
  9. VITAMIN B-12 [Concomitant]
     Dosage: 1000 MG, UNK
     Dates: start: 20110321
  10. DEXAMETHASONE [Concomitant]
  11. VITAMIN B-12 [Concomitant]
     Dosage: 1000 MG, UNK
     Dates: start: 20110509
  12. FLUOXETINE [Concomitant]

REACTIONS (2)
  - THERAPY RESPONDER [None]
  - PAPILLOEDEMA [None]
